FAERS Safety Report 8958748 (Version 1)
Quarter: 2012Q4

REPORT INFORMATION
  Report Type: 
  Country: US (occurrence: None)
  Receive Date: 20121206
  Receipt Date: 20121206
  Transmission Date: 20130627
  Serious: Yes (Hospitalization)
  Sender: FDA-Public Use
  Company Number: None

PATIENT
  Sex: Female
  Weight: 67.7 kg

DRUGS (2)
  1. CARBOPLATIN [Suspect]
  2. PACLITAXEL (TAXOL) [Suspect]

REACTIONS (11)
  - Abdominal pain [None]
  - Vomiting [None]
  - Haemoglobin decreased [None]
  - Blood potassium decreased [None]
  - Blood glucose increased [None]
  - Ascites [None]
  - Diverticulum [None]
  - Pain [None]
  - Platelet count decreased [None]
  - Neutrophil count decreased [None]
  - White blood cell count decreased [None]
